FAERS Safety Report 4388423-0 (Version None)
Quarter: 2004Q3

REPORT INFORMATION
  Report Type: 
  Country: None (occurrence: None)
  Receive Date: 20040701
  Receipt Date: 20040518
  Transmission Date: 20050211
  Serious: Yes (Hospitalization)
  Sender: FDA-Public Use
  Company Number: FR-ROCHE-368879

PATIENT
  Age: 35 Year
  Sex: Female
  Weight: 55 kg

DRUGS (5)
  1. CELLCEPT [Suspect]
     Indication: SCLERODERMA
     Route: 048
     Dates: start: 20040301, end: 20040602
  2. UNKNOWN DRUG [Concomitant]
     Dosage: DRUG NAME: ERY.
     Route: 048
  3. SOLUPRED [Concomitant]
     Route: 048
  4. SPASFON [Concomitant]
     Route: 048
  5. TRIATEC [Concomitant]
     Route: 048

REACTIONS (6)
  - COLITIS [None]
  - DIARRHOEA [None]
  - DYSPHAGIA [None]
  - PULMONARY FIBROSIS [None]
  - VOMITING [None]
  - WEIGHT DECREASED [None]
